FAERS Safety Report 10375143 (Version 1)
Quarter: 2014Q3

REPORT INFORMATION
  Report Type: Spontaneous
  Country: US (occurrence: US)
  Receive Date: 20140811
  Receipt Date: 20140811
  Transmission Date: 20150326
  Serious: Yes (Other)
  Sender: FDA-Public Use
  Company Number: US-PFIZER INC-2014218910

PATIENT
  Age: 54 Year
  Sex: Male

DRUGS (1)
  1. SUTENT [Suspect]
     Active Substance: SUNITINIB MALATE
     Dosage: 50 MG, CYCLIC (FOR 14 DAYS ON/14 DAYS OFF)
     Route: 048
     Dates: end: 20140730

REACTIONS (3)
  - Pain in extremity [Recovering/Resolving]
  - Swelling face [Not Recovered/Not Resolved]
  - Yellow skin [Recovering/Resolving]

NARRATIVE: CASE EVENT DATE: 20140804
